FAERS Safety Report 19144611 (Version 1)
Quarter: 2021Q2

REPORT INFORMATION
  Report Type: Spontaneous
  Country: US (occurrence: US)
  Receive Date: 20210415
  Receipt Date: 20210415
  Transmission Date: 20210717
  Serious: Yes (Death)
  Sender: FDA-Public Use
  Company Number: None

PATIENT
  Sex: Female

DRUGS (9)
  1. METOPROLOL. [Concomitant]
     Active Substance: METOPROLOL
  2. BENADRYL [Concomitant]
     Active Substance: DIPHENHYDRAMINE HYDROCHLORIDE
  3. LORAZEPAM. [Concomitant]
     Active Substance: LORAZEPAM
  4. FLUTICASONE. [Concomitant]
     Active Substance: FLUTICASONE
  5. PROCHLORPER [Concomitant]
  6. ZOFRAN [Concomitant]
     Active Substance: ONDANSETRON HYDROCHLORIDE
  7. FENTANYL. [Concomitant]
     Active Substance: FENTANYL
  8. OMEPRAZOLE. [Concomitant]
     Active Substance: OMEPRAZOLE
  9. NEULASTA [Suspect]
     Active Substance: PEGFILGRASTIM
     Indication: VAGINAL CANCER
     Dosage: ?          OTHER FREQUENCY:EVERY 21 DAYS;?
     Route: 058
     Dates: start: 20210122, end: 20210320

REACTIONS (1)
  - Death [None]
